FAERS Safety Report 10192337 (Version 1)
Quarter: 2014Q2

REPORT INFORMATION
  Report Type: Spontaneous
  Country: FR (occurrence: FR)
  Receive Date: 20140523
  Receipt Date: 20140523
  Transmission Date: 20141212
  Serious: Yes (Hospitalization)
  Sender: FDA-Public Use
  Company Number: ALCN2014FR003091

PATIENT
  Age: 66 Year
  Sex: Female

DRUGS (5)
  1. AZARGA [Suspect]
     Indication: GLAUCOMA
     Dosage: UNK
     Route: 047
     Dates: start: 20140127, end: 20140411
  2. LEVOTHYROX [Concomitant]
     Dosage: UNK
  3. TAHOR [Concomitant]
     Dosage: UNK
  4. PRITOR [Concomitant]
     Dosage: UNK
  5. GANFORT [Concomitant]
     Dosage: UNK

REACTIONS (1)
  - Epistaxis [Not Recovered/Not Resolved]
